FAERS Safety Report 6883111-0 (Version None)
Quarter: 2010Q3

REPORT INFORMATION
  Report Type: 
  Country: None (occurrence: None)
  Receive Date: 20100729
  Receipt Date: 20100113
  Transmission Date: 20110219
  Serious: No
  Sender: FDA-Public Use
  Company Number: US-MYLANLABS-2010S1000672

PATIENT
  Age: 54 Year
  Sex: Female
  Weight: 104.33 kg

DRUGS (5)
  1. CIPROFLOXACIN [Suspect]
     Indication: LOCALISED INFECTION
     Route: 048
     Dates: start: 20091123, end: 20091203
  2. INSULIN [Concomitant]
     Indication: DIABETES MELLITUS
     Route: 058
  3. LISINOPRIL [Concomitant]
     Indication: BLOOD PRESSURE INCREASED
     Route: 048
  4. TOPROL-XL [Concomitant]
     Indication: BLOOD PRESSURE INCREASED
     Route: 048
  5. ACIPHEX [Concomitant]
     Indication: GASTROOESOPHAGEAL REFLUX DISEASE
     Route: 048

REACTIONS (4)
  - CONSTIPATION [None]
  - INFLUENZA LIKE ILLNESS [None]
  - VISUAL BRIGHTNESS [None]
  - VULVOVAGINAL MYCOTIC INFECTION [None]
